FAERS Safety Report 19983452 (Version 1)
Quarter: 2021Q4

REPORT INFORMATION
  Report Type: Report from Study
  Country: FR (occurrence: FR)
  Receive Date: 20211022
  Receipt Date: 20211022
  Transmission Date: 20220303
  Serious: Yes (Other)
  Sender: FDA-Public Use
  Company Number: FR-ROCHE-2928036

PATIENT
  Age: 81 Year
  Weight: 82.8 kg

DRUGS (3)
  1. ATEZOLIZUMAB [Suspect]
     Active Substance: ATEZOLIZUMAB
     Indication: Bladder cancer
     Dosage: EVENT CYCLE NUMBER: 4, DATE OF LAST DOSE: 08/SEP/2021, CUMULATIVE DOSE SINCE FIRST ADINISTRATION:480
     Route: 042
     Dates: start: 20210708
  2. CARBOPLATIN [Suspect]
     Active Substance: CARBOPLATIN
     Indication: Bladder cancer
     Dosage: EVENT CYCLE NUMBER: 3, DATE OF LAST DOSE: 14/JUN/2021.
     Route: 042
     Dates: start: 20210419
  3. PREDNISOLONE SODIUM METAZOATE [Concomitant]
     Active Substance: PREDNISOLONE SODIUM METAZOATE
     Route: 048
     Dates: start: 20210922

REACTIONS (1)
  - Myositis [Not Recovered/Not Resolved]

NARRATIVE: CASE EVENT DATE: 20210928
